FAERS Safety Report 21634277 (Version 1)
Quarter: 2022Q4

REPORT INFORMATION
  Report Type: Spontaneous
  Country: US (occurrence: US)
  Receive Date: 20221123
  Receipt Date: 20221123
  Transmission Date: 20230113
  Serious: Yes (Death, Other)
  Sender: FDA-Public Use
  Company Number: US-PFIZER INC-PV202200108382

PATIENT
  Age: 50 Year
  Sex: Female

DRUGS (4)
  1. TRANEXAMIC ACID [Suspect]
     Active Substance: TRANEXAMIC ACID
     Indication: Shock haemorrhagic
     Dosage: UNK
  2. PROTAMINE [Suspect]
     Active Substance: PROTAMINE
     Indication: Shock haemorrhagic
     Dosage: UNK
  3. VITAMIN K [Suspect]
     Active Substance: PHYTONADIONE
     Indication: Shock haemorrhagic
     Dosage: UNK
  4. DESMOPRESSIN [Suspect]
     Active Substance: DESMOPRESSIN
     Indication: Shock haemorrhagic
     Dosage: UNK

REACTIONS (1)
  - Drug ineffective [Fatal]
